FAERS Safety Report 17427836 (Version 3)
Quarter: 2021Q2

REPORT INFORMATION
  Report Type: Spontaneous
  Country: FR (occurrence: FR)
  Receive Date: 20200217
  Receipt Date: 20210517
  Transmission Date: 20210716
  Serious: Yes (Hospitalization)
  Sender: FDA-Public Use
  Company Number: FR-BAUSCH-BL-2020-004652

PATIENT
  Age: 55 Year
  Sex: Female

DRUGS (3)
  1. VERAPAMIL [Interacting]
     Active Substance: VERAPAMIL HYDROCHLORIDE
     Indication: PALPITATIONS
     Route: 048
  2. CARTEOL (CARTEOLOL HYDROCHLORIDE) [Suspect]
     Active Substance: CARTEOLOL HYDROCHLORIDE
     Indication: OPEN ANGLE GLAUCOMA
     Dosage: 1 DROP PER DAY IN EACH EYE, DURATION: ONE MONTH AND A HALF
     Route: 047
     Dates: start: 201912
  3. VERAPAMIL [Interacting]
     Active Substance: VERAPAMIL HYDROCHLORIDE
     Route: 048
     Dates: start: 20200121

REACTIONS (2)
  - Drug interaction [Unknown]
  - Cardiogenic shock [Recovered/Resolved]
